FAERS Safety Report 5420937-4 (Version None)
Quarter: 2007Q3

REPORT INFORMATION
  Report Type: 
  Country: None (occurrence: None)
  Receive Date: 20070817
  Receipt Date: 20070817
  Transmission Date: 20080115
  Serious: Yes (Other)
  Sender: FDA-Public Use
  Company Number: None

PATIENT
  Age: 52 Year
  Sex: Female
  Weight: 79.3795 kg

DRUGS (1)
  1. ZOCOR [Suspect]
     Indication: LOW DENSITY LIPOPROTEIN INCREASED
     Dosage: 40 MG ONCE/DAY PO
     Route: 048
     Dates: start: 20070721, end: 20070805

REACTIONS (8)
  - ASTHENIA [None]
  - BURNING SENSATION [None]
  - EYE MOVEMENT DISORDER [None]
  - FATIGUE [None]
  - MENTAL IMPAIRMENT [None]
  - MUSCLE TWITCHING [None]
  - PAIN [None]
  - PARAESTHESIA [None]
